FAERS Safety Report 8309215-3 (Version None)
Quarter: 2012Q2

REPORT INFORMATION
  Report Type: 
  Country: None (occurrence: None)
  Receive Date: 20120424
  Receipt Date: 20120409
  Transmission Date: 20120825
  Serious: Yes (Other)
  Sender: FDA-Public Use
  Company Number: CHPA2012US009083

PATIENT
  Sex: Female

DRUGS (2)
  1. EXCEDRIN EXTRA STRENGTH TABLETS [Suspect]
     Indication: TOOTHACHE
     Dosage: UNK DF, QD
     Route: 064
     Dates: start: 19870101
  2. EXCEDRIN EXTRA STRENGTH TABLETS [Suspect]
     Dosage: UNK DF, QD
     Route: 048

REACTIONS (9)
  - INCORRECT DOSE ADMINISTERED [None]
  - DEAFNESS [None]
  - ENERGY INCREASED [None]
  - MENTAL IMPAIRMENT [None]
  - MATERNAL EXPOSURE DURING PREGNANCY [None]
  - TINNITUS [None]
  - OVERDOSE [None]
  - WRONG TECHNIQUE IN DRUG USAGE PROCESS [None]
  - OFF LABEL USE [None]
